FAERS Safety Report 6082144-4 (Version None)
Quarter: 2009Q1

REPORT INFORMATION
  Report Type: 
  Country: None (occurrence: None)
  Receive Date: 20090127
  Receipt Date: 20080917
  Transmission Date: 20090719
  Serious: Yes (Hospitalization)
  Sender: FDA-Public Use
  Company Number: 2008BH009578

PATIENT
  Age: 67 Year
  Sex: Male

DRUGS (2)
  1. DIANEAL [Suspect]
     Indication: RENAL FAILURE CHRONIC
     Dosage: IP
     Route: 033
     Dates: end: 20080908
  2. INSULIN [Concomitant]

REACTIONS (1)
  - ABDOMINAL PAIN UPPER [None]
